FAERS Safety Report 20994124 (Version 2)
Quarter: 2022Q3

REPORT INFORMATION
  Report Type: Spontaneous
  Country: CZ (occurrence: CZ)
  Receive Date: 20220622
  Receipt Date: 20220706
  Transmission Date: 20221027
  Serious: Yes (Hospitalization, Other)
  Sender: FDA-Public Use
  Company Number: CZ-PFIZER INC-202200806486

PATIENT
  Age: 25 Year
  Sex: Male

DRUGS (29)
  1. VANCOMYCIN [Suspect]
     Active Substance: VANCOMYCIN
     Indication: Sepsis
     Dosage: 2 GRAM, QD (1 G, 2X/DAY)
     Route: 042
  2. VANCOMYCIN [Suspect]
     Active Substance: VANCOMYCIN
     Indication: Staphylococcal sepsis
     Dosage: UNK, TID ( (CEFTAZIDIME/ AMIKACIN (3X2.5 G)
     Route: 042
  3. VANCOMYCIN [Suspect]
     Active Substance: VANCOMYCIN
     Dosage: 1 GRAM, BID
     Route: 042
     Dates: start: 2021
  4. CEFTAZIDIME [Suspect]
     Active Substance: CEFTAZIDIME
     Indication: Septic shock
     Dosage: 2.5 GRAM, TID (UNK, TID (CEFTAZIDIME/ AMIKACIN (3X2.5 G)  )
     Route: 042
  5. CEFTAZIDIME [Suspect]
     Active Substance: CEFTAZIDIME
     Indication: Staphylococcal infection
  6. CEFTAZIDIME [Suspect]
     Active Substance: CEFTAZIDIME
     Indication: Enterococcal infection
  7. AMIKACIN [Suspect]
     Active Substance: AMIKACIN
     Indication: Sepsis
     Dosage: 2 GRAM, QD (1 G, 2X/DAY)
     Route: 042
  8. AMIKACIN [Suspect]
     Active Substance: AMIKACIN
     Indication: Septic shock
     Dosage: UNK UNK, QD (UNK, TID (CEFTAZIDIME/ AMIKACIN (3X2.5 G)  )
     Route: 042
  9. AMIKACIN [Suspect]
     Active Substance: AMIKACIN
     Indication: Staphylococcal infection
     Dosage: 1 GRAM, BID
     Route: 042
     Dates: start: 2021
  10. AMIKACIN [Suspect]
     Active Substance: AMIKACIN
     Indication: Enterococcal infection
  11. AMIKACIN [Suspect]
     Active Substance: AMIKACIN
     Indication: Staphylococcal sepsis
  12. LINEZOLID [Suspect]
     Active Substance: LINEZOLID
     Indication: Sepsis
     Dosage: 1200 MILLIGRAM, QD (600 MG, 2X/DAY)
     Route: 042
  13. LINEZOLID [Suspect]
     Active Substance: LINEZOLID
     Indication: Septic shock
     Dosage: 600 MILLIGRAM, BID
     Route: 042
     Dates: start: 2021
  14. LINEZOLID [Suspect]
     Active Substance: LINEZOLID
     Indication: Enterococcal infection
  15. LINEZOLID [Suspect]
     Active Substance: LINEZOLID
     Indication: Staphylococcal infection
  16. LINEZOLID [Suspect]
     Active Substance: LINEZOLID
     Indication: Staphylococcal sepsis
  17. AVIBACTAM SODIUM\CEFTAZIDIME [Suspect]
     Active Substance: AVIBACTAM SODIUM\CEFTAZIDIME
     Indication: Sepsis
     Dosage: 7.5 GRAM, QD (2.5 G, 3X/DAY)
     Route: 042
  18. AVIBACTAM SODIUM\CEFTAZIDIME [Suspect]
     Active Substance: AVIBACTAM SODIUM\CEFTAZIDIME
     Indication: Staphylococcal sepsis
     Dosage: 2.5 GRAM, Q8H
     Route: 042
     Dates: start: 2021
  19. MEROPENEM [Suspect]
     Active Substance: MEROPENEM
     Indication: Sepsis
     Dosage: 8 GRAM, QD (2 G, 4X/DAY)
     Route: 042
  20. MEROPENEM [Suspect]
     Active Substance: MEROPENEM
     Indication: Staphylococcal sepsis
     Dosage: 2 GRAM, Q6H
     Route: 042
     Dates: start: 2021
  21. ANIDULAFUNGIN [Concomitant]
     Active Substance: ANIDULAFUNGIN
     Indication: Pleural effusion
     Dosage: 200 MILLIGRAM, ONCE (200 MG, SINGLE (LOADING DOSE))
     Route: 065
  22. ANIDULAFUNGIN [Concomitant]
     Active Substance: ANIDULAFUNGIN
     Indication: Hydrothorax
     Dosage: 100 MILLIGRAM (100 MG IV)
     Route: 042
  23. ANIDULAFUNGIN [Concomitant]
     Active Substance: ANIDULAFUNGIN
     Dosage: 100 MILLIGRAM (100 MG, EMPIRICALLY SUPPLEMENTED, STANDARD DOSE 200 MG)
     Route: 042
  24. ANIDULAFUNGIN [Concomitant]
     Active Substance: ANIDULAFUNGIN
     Dosage: 200 MILLIGRAM
     Route: 065
     Dates: start: 2021
  25. ANIDULAFUNGIN [Concomitant]
     Active Substance: ANIDULAFUNGIN
     Dosage: 100 MILLIGRAM
     Route: 042
     Dates: start: 2021
  26. NOREPINEPHRINE [Concomitant]
     Active Substance: NOREPINEPHRINE
     Indication: Septic shock
     Dosage: UNK (0.6 MICROGRAM/KG/MIN)
     Route: 065
  27. NOREPINEPHRINE [Concomitant]
     Active Substance: NOREPINEPHRINE
     Dosage: UNK (0.2 MICROGRAM/KG/MIN)
     Route: 065
  28. NOREPINEPHRINE [Concomitant]
     Active Substance: NOREPINEPHRINE
     Dosage: 0.6 MILLIGRAM/KILOGRAM, QMINUTE (0.6 MICROGRAM/KG/MIN)
     Route: 065
     Dates: start: 2021
  29. NOREPINEPHRINE [Concomitant]
     Active Substance: NOREPINEPHRINE
     Dosage: 0.2 MILLIGRAM/KILOGRAM, QMINUTE (0.2 MICROGRAM/KG/MIN)
     Route: 065
     Dates: start: 2021

REACTIONS (2)
  - Mucormycosis [Recovered/Resolved]
  - Cutaneous mucormycosis [Recovered/Resolved]

NARRATIVE: CASE EVENT DATE: 20210101
